FAERS Safety Report 16721738 (Version 1)
Quarter: 2019Q3

REPORT INFORMATION
  Report Type: Report from Study
  Country: DE (occurrence: DE)
  Receive Date: 20190820
  Receipt Date: 20190820
  Transmission Date: 20191005
  Serious: Yes (Hospitalization)
  Sender: FDA-Public Use
  Company Number: DE-MYLANLABS-2019M1078037

PATIENT
  Age: 56 Year
  Sex: Female

DRUGS (6)
  1. LEPONEX [Suspect]
     Active Substance: CLOZAPINE
     Dosage: 50MG/DAY
     Route: 048
     Dates: start: 20030929, end: 20030930
  2. GASTROZEPIN [Suspect]
     Active Substance: PIRENZEPINE HYDROCHLORIDE
     Indication: PRODUCT USED FOR UNKNOWN INDICATION
     Dosage: 50MG/DAY
     Route: 048
     Dates: start: 20030929, end: 20031116
  3. LEPONEX [Suspect]
     Active Substance: CLOZAPINE
     Dosage: 300MG/DAY
     Route: 048
     Dates: start: 20031009, end: 20031020
  4. LEPONEX [Suspect]
     Active Substance: CLOZAPINE
     Dosage: UNK
     Route: 048
     Dates: end: 2003
  5. LEPONEX [Suspect]
     Active Substance: CLOZAPINE
     Indication: SCHIZOPHRENIA
     Dosage: 350MG/DAY
     Route: 048
     Dates: start: 20031021, end: 20031116
  6. LEPONEX [Suspect]
     Active Substance: CLOZAPINE
     Dosage: 200MG/DAY
     Route: 048
     Dates: start: 20031001, end: 20031008

REACTIONS (6)
  - Generalised tonic-clonic seizure [Recovered/Resolved]
  - Tongue biting [Recovered/Resolved]
  - Joint dislocation [Recovered/Resolved]
  - Tooth fracture [Recovered/Resolved]
  - Drug level above therapeutic [Recovered/Resolved]
  - Tonic clonic movements [Recovered/Resolved]

NARRATIVE: CASE EVENT DATE: 2003
